FAERS Safety Report 6676100-2 (Version None)
Quarter: 2010Q2

REPORT INFORMATION
  Report Type: 
  Country: None (occurrence: None)
  Receive Date: 20100412
  Receipt Date: 20100331
  Transmission Date: 20101027
  Serious: Yes (Other)
  Sender: FDA-Public Use
  Company Number: US-PFIZER INC-2010028894

PATIENT
  Sex: Female
  Weight: 68 kg

DRUGS (1)
  1. CHANTIX [Suspect]
     Indication: SMOKING CESSATION THERAPY
     Dosage: 1 MG, 2X/DAY
     Route: 048
     Dates: start: 20100210, end: 20100224

REACTIONS (10)
  - ANXIETY [None]
  - DECREASED APPETITE [None]
  - DISTURBANCE IN ATTENTION [None]
  - FEELING ABNORMAL [None]
  - INCOHERENT [None]
  - PANIC ATTACK [None]
  - PERFORMANCE STATUS DECREASED [None]
  - SOCIAL FEAR [None]
  - TEARFULNESS [None]
  - TREMOR [None]
